FAERS Safety Report 10208039 (Version 1)
Quarter: 2014Q2

REPORT INFORMATION
  Report Type: Report from Study
  Country: FR (occurrence: FR)
  Receive Date: 20140530
  Receipt Date: 20140530
  Transmission Date: 20141212
  Serious: Yes (Hospitalization)
  Sender: FDA-Public Use
  Company Number: FR-CELGENEUS-056-21880-14053033

PATIENT
  Age: 57 Year
  Sex: Male

DRUGS (7)
  1. REVLIMID [Suspect]
     Indication: POEMS SYNDROME
     Route: 048
     Dates: start: 20140228
  2. DEXAMETHASONE ACETATE [Suspect]
     Indication: POEMS SYNDROME
     Route: 065
     Dates: start: 20140228
  3. BACTRIM [Concomitant]
     Indication: PRODUCT USED FOR UNKNOWN INDICATION
     Route: 065
     Dates: start: 20140224
  4. LEVOTHYROX [Concomitant]
     Indication: PRODUCT USED FOR UNKNOWN INDICATION
     Route: 065
     Dates: start: 2011
  5. FLUDROCORTISONE [Concomitant]
     Indication: PRODUCT USED FOR UNKNOWN INDICATION
     Route: 065
     Dates: start: 20140218
  6. HYDROCORTISONE [Concomitant]
     Indication: PRODUCT USED FOR UNKNOWN INDICATION
     Route: 065
     Dates: start: 20140218
  7. ANDRACTIM [Concomitant]
     Indication: PRODUCT USED FOR UNKNOWN INDICATION
     Route: 065
     Dates: start: 20140224

REACTIONS (2)
  - Oedema peripheral [Unknown]
  - Eosinophilia [Unknown]
